FAERS Safety Report 12690665 (Version 2)
Quarter: 2016Q3

REPORT INFORMATION
  Report Type: Report from Study
  Country: ES (occurrence: ES)
  Receive Date: 20160826
  Receipt Date: 20160901
  Transmission Date: 20161109
  Serious: Yes (Other)
  Sender: FDA-Public Use
  Company Number: ES-009507513-1608ESP013202

PATIENT

DRUGS (4)
  1. PROPOFOL. [Concomitant]
     Active Substance: PROPOFOL
     Indication: INDUCTION OF ANAESTHESIA
     Route: 042
  2. ROCURONIUM BROMIDE. [Suspect]
     Active Substance: ROCURONIUM BROMIDE
     Indication: NEUROMUSCULAR BLOCKING THERAPY
     Dosage: 0.6 MG/KG, UNK
  3. SUGAMMADEX SODIUM [Suspect]
     Active Substance: SUGAMMADEX SODIUM
     Indication: ANAESTHESIA REVERSAL
     Dosage: 2-4 MG/KG
  4. SEVOFLURANE. [Concomitant]
     Active Substance: SEVOFLURANE
     Indication: MAINTENANCE OF ANAESTHESIA

REACTIONS (1)
  - Respiratory disorder [Unknown]
